FAERS Safety Report 10336878 (Version 2)
Quarter: 2014Q3

REPORT INFORMATION
  Report Type: Spontaneous
  Country: US (occurrence: US)
  Receive Date: 20140723
  Receipt Date: 20140723
  Transmission Date: 20150326
  Serious: Yes (Hospitalization, Other)
  Sender: FDA-Public Use
  Company Number: US-UNITED THERAPEUTICS-UTC-044432

PATIENT
  Age: 72 Year
  Sex: Female
  Weight: 99.8 kg

DRUGS (3)
  1. ADCIRCA [Suspect]
     Active Substance: TADALAFIL
     Dosage: UNK
  2. TYVASO [Suspect]
     Active Substance: TREPROSTINIL
     Dosage: 18-54 MCG
     Dates: start: 20131220
  3. LETAIRIS [Suspect]
     Active Substance: AMBRISENTAN
     Dosage: 10 MG, UNK
     Dates: start: 20130524

REACTIONS (1)
  - Drug ineffective [Unknown]

NARRATIVE: CASE EVENT DATE: 20140120
